FAERS Safety Report 5125040-9 (Version None)
Quarter: 2006Q4

REPORT INFORMATION
  Report Type: 
  Country: None (occurrence: None)
  Receive Date: 20061006
  Receipt Date: 20060920
  Transmission Date: 20070319
  Serious: Yes (Hospitalization, Other)
  Sender: FDA-Public Use
  Company Number: 229253

PATIENT
  Age: 75 Year
  Sex: Female
  Weight: 77 kg

DRUGS (7)
  1. AVASTIN [Suspect]
     Indication: COLON CANCER
     Dosage: 560 MG, Q3W, INTRAVENOUS
     Route: 042
     Dates: start: 20060220, end: 20060721
  2. CAPECITABINE (CAPECITABINE) [Suspect]
     Indication: COLON CANCER
     Dosage: 1650 MG, BID, ORAL
     Route: 048
     Dates: start: 20060220, end: 20060715
  3. OXALIPLATIN [Suspect]
     Indication: COLON CANCER
     Dosage: 220 MG, Q3W, INTRAVENOUS
     Route: 042
     Dates: start: 20060220
  4. CITALOPRAM HYDROBROMIDE [Concomitant]
  5. SIMVASTATIN [Concomitant]
  6. OXAZEPAM [Concomitant]
  7. NORVASC [Concomitant]

REACTIONS (18)
  - ATELECTASIS [None]
  - BLOOD POTASSIUM DECREASED [None]
  - BLOOD SODIUM DECREASED [None]
  - COLITIS [None]
  - COLLAPSE OF LUNG [None]
  - DEHYDRATION [None]
  - ESCHERICHIA INFECTION [None]
  - FALL [None]
  - GENERAL PHYSICAL HEALTH DETERIORATION [None]
  - ILEUS [None]
  - LOSS OF CONSCIOUSNESS [None]
  - NAUSEA [None]
  - OXYGEN SATURATION DECREASED [None]
  - PLEURAL EFFUSION [None]
  - PLEURITIC PAIN [None]
  - PULMONARY EMBOLISM [None]
  - URINARY TRACT INFECTION [None]
  - VOMITING [None]
